FAERS Safety Report 8483238-6 (Version None)
Quarter: 2012Q3

REPORT INFORMATION
  Report Type: 
  Country: None (occurrence: None)
  Receive Date: 20120702
  Receipt Date: 20120627
  Transmission Date: 20120928
  Serious: Yes (Death)
  Sender: FDA-Public Use
  Company Number: JP-ABBOTT-12P-087-0919031-00

PATIENT
  Sex: Female

DRUGS (3)
  1. PREDNISOLONE SODIUM SUCCINATE INJ [Suspect]
     Indication: RHEUMATOID ARTHRITIS
     Route: 048
     Dates: start: 20071114
  2. HUMIRA [Suspect]
     Indication: RHEUMATOID ARTHRITIS
     Route: 058
     Dates: start: 20110119, end: 20111020
  3. RHEUMATREX [Suspect]
     Indication: RHEUMATOID ARTHRITIS
     Route: 048
     Dates: start: 19971203, end: 20111102

REACTIONS (3)
  - HEPATITIS B SURFACE ANTIBODY POSITIVE [None]
  - HEPATIC FAILURE [None]
  - HEPATITIS B [None]
